FAERS Safety Report 4936697-7 (Version None)
Quarter: 2006Q1

REPORT INFORMATION
  Report Type: 
  Country: None (occurrence: None)
  Receive Date: 20060303
  Receipt Date: 20060216
  Transmission Date: 20060701
  Serious: Yes (Hospitalization)
  Sender: FDA-Public Use
  Company Number: TNZFR200600018

PATIENT
  Age: 65 Year
  Sex: Male
  Weight: 75 kg

DRUGS (2)
  1. INNOHEP [Suspect]
     Dosage: 4500 IU (4500 IU, ONCE DAILY), SUBCUTANEOUS
     Route: 058
     Dates: start: 20051210
  2. UMULINE (INSULIN HUMAN) [Concomitant]

REACTIONS (3)
  - BLOOD PRESSURE SYSTOLIC INCREASED [None]
  - HYPOGLYCAEMIA [None]
  - MALAISE [None]
